FAERS Safety Report 12435433 (Version 1)
Quarter: 2016Q2

REPORT INFORMATION
  Report Type: Spontaneous
  Country: US (occurrence: US)
  Receive Date: 20160603
  Receipt Date: 20160603
  Transmission Date: 20160815
  Serious: No
  Sender: FDA-Public Use
  Company Number: US-ROCHE-1651135

PATIENT
  Sex: Female

DRUGS (3)
  1. XELODA [Suspect]
     Active Substance: CAPECITABINE
     Indication: NEOPLASM MALIGNANT
     Dosage: AT 4 AM AND 3PM
     Route: 048
     Dates: start: 201409
  2. XELODA [Suspect]
     Active Substance: CAPECITABINE
     Dosage: AT PM
     Route: 048
     Dates: start: 20140828
  3. XELODA [Suspect]
     Active Substance: CAPECITABINE
     Dosage: AT AM
     Route: 048
     Dates: start: 20140828

REACTIONS (1)
  - Neuropathy peripheral [Not Recovered/Not Resolved]
